FAERS Safety Report 4337404-1 (Version None)
Quarter: 2004Q2

REPORT INFORMATION
  Report Type: 
  Country: None (occurrence: None)
  Receive Date: 20040412
  Receipt Date: 20040412
  Transmission Date: 20050107
  Serious: Yes (Life-Threatening, Hospitalization)
  Sender: FDA-Public Use
  Company Number: None

PATIENT
  Age: 51 Year
  Sex: Female
  Weight: 97 kg

DRUGS (2)
  1. AZITHROMYCIN [Suspect]
     Indication: UPPER RESPIRATORY TRACT INFECTION
     Dosage: SEE IMAGE
     Route: 048
  2. . [Concomitant]

REACTIONS (3)
  - HEPATITIS FULMINANT [None]
  - LIVER TRANSPLANT [None]
  - OCULAR ICTERUS [None]
